FAERS Safety Report 19022399 (Version 1)
Quarter: 2021Q1

REPORT INFORMATION
  Report Type: Spontaneous
  Country: CN (occurrence: CN)
  Receive Date: 20210317
  Receipt Date: 20210317
  Transmission Date: 20210420
  Serious: Yes (Death, Hospitalization, Other)
  Sender: FDA-Public Use
  Company Number: CN-VIIV HEALTHCARE LIMITED-CN2021APC060859

PATIENT
  Age: 41 Year
  Sex: Male

DRUGS (3)
  1. EFAVIRENZ. [Suspect]
     Active Substance: EFAVIRENZ
     Indication: HIV INFECTION
     Dosage: UNK
     Route: 048
  2. LAMIVUDINE HIV [Suspect]
     Active Substance: LAMIVUDINE
     Indication: HIV INFECTION
     Dosage: UNK
  3. ZIDOVUDINE. [Suspect]
     Active Substance: ZIDOVUDINE
     Indication: HIV INFECTION
     Dosage: UNK

REACTIONS (8)
  - CD4 lymphocytes decreased [Unknown]
  - Anuria [Not Recovered/Not Resolved]
  - Abdominal pain [Recovered/Resolved]
  - Death [Fatal]
  - Gastrointestinal oedema [Unknown]
  - Pancreatitis acute [Unknown]
  - Abdominal pain lower [Recovered/Resolved]
  - Acute kidney injury [Not Recovered/Not Resolved]
